FAERS Safety Report 16989996 (Version 1)
Quarter: 2019Q4

REPORT INFORMATION
  Report Type: Spontaneous
  Country: BR (occurrence: BR)
  Receive Date: 20191104
  Receipt Date: 20191104
  Transmission Date: 20200122
  Serious: Yes (Other)
  Sender: FDA-Public Use
  Company Number: BR-B.I. PHARMACEUTICALS,INC./RIDGEFIELD-2019-BI-110680

PATIENT

DRUGS (4)
  1. OFEV [Suspect]
     Active Substance: NINTEDANIB
     Route: 065
  2. OFEV [Suspect]
     Active Substance: NINTEDANIB
     Route: 065
  3. PREDNISONA [Concomitant]
     Active Substance: PREDNISONE
     Indication: PRODUCT USED FOR UNKNOWN INDICATION
     Route: 065
  4. OFEV [Suspect]
     Active Substance: NINTEDANIB
     Indication: IDIOPATHIC PULMONARY FIBROSIS
     Route: 065
     Dates: start: 201602

REACTIONS (7)
  - Dyspnoea [Unknown]
  - Nausea [Recovered/Resolved]
  - General physical health deterioration [Unknown]
  - Weight decreased [Recovered/Resolved]
  - Idiopathic pulmonary fibrosis [Unknown]
  - Diarrhoea [Not Recovered/Not Resolved]
  - Vomiting [Recovered/Resolved]

NARRATIVE: CASE EVENT DATE: 201602
